FAERS Safety Report 7554318-4 (Version None)
Quarter: 2011Q2

REPORT INFORMATION
  Report Type: 
  Country: None (occurrence: None)
  Receive Date: 20110617
  Receipt Date: 20110606
  Transmission Date: 20111010
  Serious: Yes (Life-Threatening, Hospitalization)
  Sender: FDA-Public Use
  Company Number: NL-TEVA-285091ISR

PATIENT
  Sex: Male

DRUGS (4)
  1. METHOTREXATE [Suspect]
     Dates: start: 20050503, end: 20100824
  2. CARDIOX (TAURINE+GLYCINE+MAGNESIUM+FOLIC ACID+B12) [Concomitant]
     Dates: start: 20061017, end: 20100824
  3. ABATACEPT [Suspect]
     Dosage: 125 MILLIGRAM;
     Route: 058
     Dates: start: 20090506, end: 20101130
  4. CYANOCOBALAMIN [Concomitant]
     Dates: start: 20050503

REACTIONS (2)
  - SEPTIC SHOCK [None]
  - CHOLECYSTITIS [None]
